FAERS Safety Report 11681048 (Version 2)
Quarter: 2015Q4

REPORT INFORMATION
  Report Type: Spontaneous
  Country: US (occurrence: US)
  Receive Date: 20151027
  Receipt Date: 20151104
  Transmission Date: 20160304
  Serious: No
  Sender: FDA-Public Use
  Company Number: US-ELI_LILLY_AND_COMPANY-US201006005796

PATIENT
  Age: 56 Year
  Sex: Female

DRUGS (8)
  1. FORTEO [Suspect]
     Active Substance: TERIPARATIDE
     Indication: OSTEOPOROSIS
     Dosage: 20 UG, DAILY (1/D)
     Dates: start: 2010
  2. FORTEO [Suspect]
     Active Substance: TERIPARATIDE
     Dosage: 20 UG, DAILY (1/D)
  3. FORTEO [Suspect]
     Active Substance: TERIPARATIDE
     Dosage: 20 UG, QD
     Route: 065
  4. FORTEO [Suspect]
     Active Substance: TERIPARATIDE
     Dosage: 20 UG, DAILY (1/D)
  5. FORTEO [Suspect]
     Active Substance: TERIPARATIDE
     Dosage: 20 UG, DAILY (1/D)
  6. FORTEO [Suspect]
     Active Substance: TERIPARATIDE
     Dosage: 20 UG, DAILY (1/D)
  7. FORTEO [Suspect]
     Active Substance: TERIPARATIDE
     Dosage: 20 UG, QD
     Dates: end: 201106
  8. TYLENOL WITH CODEINE [Concomitant]
     Active Substance: ACETAMINOPHEN\CODEINE PHOSPHATE

REACTIONS (31)
  - Pain in extremity [Recovering/Resolving]
  - Paraesthesia [Unknown]
  - Sluggishness [Unknown]
  - Muscular weakness [Unknown]
  - Nerve injury [Unknown]
  - Pulmonary congestion [Recovering/Resolving]
  - Muscular weakness [Not Recovered/Not Resolved]
  - Flank pain [Unknown]
  - Foot deformity [Unknown]
  - Back disorder [Unknown]
  - Pain [Unknown]
  - Osteoarthritis [Unknown]
  - Nausea [Not Recovered/Not Resolved]
  - Pain in extremity [Unknown]
  - Memory impairment [Unknown]
  - Tenderness [Unknown]
  - Viral infection [Unknown]
  - Intervertebral disc disorder [Unknown]
  - Back pain [Unknown]
  - Intervertebral disc protrusion [Unknown]
  - Arthropathy [Not Recovered/Not Resolved]
  - Asthenia [Recovering/Resolving]
  - Arthralgia [Unknown]
  - Injection site bruising [Recovered/Resolved]
  - Constipation [Unknown]
  - Abdominal pain upper [Not Recovered/Not Resolved]
  - Fatigue [Not Recovered/Not Resolved]
  - Pain [Unknown]
  - Abdominal discomfort [Unknown]
  - Bone disorder [Unknown]
  - Peripheral swelling [Unknown]

NARRATIVE: CASE EVENT DATE: 20100930
